FAERS Safety Report 17222386 (Version 1)
Quarter: 2020Q1

REPORT INFORMATION
  Report Type: Spontaneous
  Country: FR (occurrence: FR)
  Receive Date: 20200101
  Receipt Date: 20200101
  Transmission Date: 20200409
  Serious: Yes (Life-Threatening)
  Sender: FDA-Public Use
  Company Number: FR-BAXTER-2019BAX026835

PATIENT
  Age: 68 Year
  Sex: Male
  Weight: 84 kg

DRUGS (9)
  1. ENDOXAN 1000 MG, POUDRE POUR SOLUTIONINJECTABLE [Suspect]
     Active Substance: CYCLOPHOSPHAMIDE
     Indication: B-CELL LYMPHOMA
     Dosage: CYCLICAL
     Route: 042
     Dates: start: 201512, end: 201605
  2. PREDNISONE. [Suspect]
     Active Substance: PREDNISONE
     Indication: B-CELL LYMPHOMA
     Dosage: CYCLICAL
     Route: 048
     Dates: start: 201512, end: 201605
  3. CANDESARTAN CILEXETIL. [Concomitant]
     Active Substance: CANDESARTAN CILEXETIL
     Indication: AORTIC DILATATION
     Route: 048
     Dates: end: 20190604
  4. PARACETAMOL [Concomitant]
     Active Substance: ACETAMINOPHEN
     Indication: GAIT DISTURBANCE
     Route: 048
     Dates: end: 20190604
  5. MABTHERA [Suspect]
     Active Substance: RITUXIMAB
     Indication: B-CELL LYMPHOMA
     Route: 042
     Dates: start: 201512, end: 201605
  6. DOXIL [Suspect]
     Active Substance: DOXORUBICIN HYDROCHLORIDE
     Indication: B-CELL LYMPHOMA
     Route: 042
     Dates: start: 201512, end: 201605
  7. OMEPRAZOLE. [Concomitant]
     Active Substance: OMEPRAZOLE
     Indication: PRODUCT USED FOR UNKNOWN INDICATION
     Route: 048
     Dates: end: 20190604
  8. VINCRISTINE [Suspect]
     Active Substance: VINCRISTINE
     Indication: B-CELL LYMPHOMA
     Dosage: CYCLICAL
     Route: 042
     Dates: start: 201512, end: 201605
  9. VALACICLOVIR [Concomitant]
     Active Substance: VALACYCLOVIR HYDROCHLORIDE
     Indication: OPPORTUNISTIC INFECTION PROPHYLAXIS
     Route: 048
     Dates: end: 20190604

REACTIONS (1)
  - Hepatitis B reactivation [Recovered/Resolved]

NARRATIVE: CASE EVENT DATE: 20160601
